FAERS Safety Report 20619142 (Version 2)
Quarter: 2022Q2

REPORT INFORMATION
  Report Type: Report from Study
  Country: US (occurrence: US)
  Receive Date: 20220322
  Receipt Date: 20220422
  Transmission Date: 20220721
  Serious: Yes (Death, Other)
  Sender: FDA-Public Use
  Company Number: US-ACADIA PHARMACEUTICALS INC.-ACA-2022-PIM-000920

PATIENT
  Age: 83 Year
  Sex: Female

DRUGS (27)
  1. NUPLAZID [Suspect]
     Active Substance: PIMAVANSERIN TARTRATE
     Indication: Parkinson^s disease
     Dosage: 34 MILLIGRAM, QD
     Route: 048
     Dates: start: 20190123, end: 20220309
  2. NUPLAZID [Suspect]
     Active Substance: PIMAVANSERIN TARTRATE
     Indication: Hallucination
  3. ABH [Concomitant]
     Indication: Agitation
     Dosage: 0.5 ML THREE TIMES A DAY TOPICAL
     Route: 061
     Dates: start: 20210607
  4. ACETAMINOPHEN [Concomitant]
     Active Substance: ACETAMINOPHEN
     Indication: Pain
     Dosage: 650 MG EVERY 6 HOURS AS NEEDED
     Route: 054
     Dates: start: 20201109
  5. ACETAMINOPHEN [Concomitant]
     Active Substance: ACETAMINOPHEN
     Indication: Pyrexia
  6. BISACODYL [Concomitant]
     Active Substance: BISACODYL
     Indication: Constipation
     Dosage: 10MG EVERY DAY AS NEEDED
     Route: 054
     Dates: start: 20201109
  7. HALDOL [Concomitant]
     Active Substance: HALOPERIDOL
     Indication: Agitation
     Dosage: 1 M EVERY 6 HOURS AS NEEDED
     Route: 048
     Dates: start: 20201109
  8. LEVSIN SL [Concomitant]
     Active Substance: HYOSCYAMINE SULFATE
     Indication: Secretion discharge
     Dosage: 0.125 MG EVERY 6 HOURS AS NEEDED
     Route: 060
     Dates: start: 20201109
  9. LORAZEPAM [Concomitant]
     Active Substance: LORAZEPAM
     Indication: Anxiety
     Dosage: 1MG EVERY 6 HOURS AS NEEDED
     Route: 048
     Dates: start: 20201109
  10. MELATONIN [Concomitant]
     Active Substance: MELATONIN
     Indication: Sleep disorder
     Dosage: 5MG BEDTIME AS NEEDED
     Route: 048
     Dates: start: 20210331
  11. MORPHINE SULFATE [Concomitant]
     Active Substance: MORPHINE SULFATE
     Indication: Pain
     Dosage: 5MG EVERY 6HOURS AS NEEDED
     Route: 048
     Dates: start: 20201109
  12. MORPHINE SULFATE [Concomitant]
     Active Substance: MORPHINE SULFATE
     Indication: Dyspnoea
  13. NUEDEXTA [Concomitant]
     Active Substance: DEXTROMETHORPHAN HYDROBROMIDE\QUINIDINE SULFATE
     Indication: Affective disorder
     Dosage: 20-10 MG EVERY DAY
     Route: 048
     Dates: start: 20201109
  14. ONDANSETRON HCL [Concomitant]
     Active Substance: ONDANSETRON HYDROCHLORIDE
     Indication: Nausea
     Dosage: 8 MG TWICE A DAY
     Route: 048
     Dates: start: 20201118
  15. ONDANSETRON HCL [Concomitant]
     Active Substance: ONDANSETRON HYDROCHLORIDE
     Indication: Vomiting
  16. OXYGEN [Concomitant]
     Active Substance: OXYGEN
     Indication: Dyspnoea
     Dosage: 2-3 L CANNULA AS NEEDED
     Route: 045
     Dates: start: 20201109
  17. OXYGEN [Concomitant]
     Active Substance: OXYGEN
     Indication: Wheezing
  18. RASAGILINE MESYLATE [Concomitant]
     Active Substance: RASAGILINE MESYLATE
     Indication: Tremor
     Dosage: 1MG EVERY DAY
     Route: 048
     Dates: start: 20201109
  19. RASAGILINE MESYLATE [Concomitant]
     Active Substance: RASAGILINE MESYLATE
     Indication: Parkinson^s disease
  20. ROPINIROLE HYDROCHLORIDE [Concomitant]
     Active Substance: ROPINIROLE HYDROCHLORIDE
     Indication: Tremor
     Dosage: 0.5MG THREE TIMES A DAY
     Route: 048
     Dates: start: 20201109
  21. RYTARY [Concomitant]
     Active Substance: CARBIDOPA\LEVODOPA
     Indication: Tremor
     Dosage: 61.25-245MG 4 TIMES A DAY
     Route: 048
     Dates: start: 20210318
  22. SENNA S [Concomitant]
     Active Substance: DOCUSATE SODIUM\SENNA LEAF
     Indication: Constipation
     Dosage: 8.6-50 MG TWICE A DAY
     Route: 048
     Dates: start: 20201109
  23. TEMAZEPAM [Concomitant]
     Active Substance: TEMAZEPAM
     Indication: Sleep disorder
     Dosage: 30MG BEDTIME
     Route: 048
     Dates: start: 20210324
  24. TEMAZEPAM [Concomitant]
     Active Substance: TEMAZEPAM
     Dosage: 15MG
     Route: 048
     Dates: start: 20210414
  25. TRAMADOL HCL [Concomitant]
     Active Substance: TRAMADOL HYDROCHLORIDE
     Indication: Pain
     Dosage: 50MG EVERY 4 HOURS
     Route: 048
     Dates: start: 20210608
  26. ZOFRAN [Concomitant]
     Active Substance: ONDANSETRON HYDROCHLORIDE
     Indication: Nausea
     Dosage: 4 MG EVERY 6 HOURS
  27. ZOFRAN [Concomitant]
     Active Substance: ONDANSETRON HYDROCHLORIDE
     Indication: Vomiting

REACTIONS (2)
  - Neurodegenerative disorder [Recovered/Resolved]
  - Asthenia [Recovered/Resolved]

NARRATIVE: CASE EVENT DATE: 20201109
